FAERS Safety Report 15152628 (Version 1)
Quarter: 2018Q3

REPORT INFORMATION
  Report Type: Report from Study
  Country: DE (occurrence: DE)
  Receive Date: 20180717
  Receipt Date: 20180717
  Transmission Date: 20181010
  Serious: Yes (Other)
  Sender: FDA-Public Use
  Company Number: DE-ROCHE-2115071

PATIENT
  Age: 34 Year
  Sex: Female
  Weight: 90 kg

DRUGS (16)
  1. FENISTIL (GERMANY) [Concomitant]
     Route: 048
     Dates: start: 20170405, end: 20170405
  2. FENISTIL (GERMANY) [Concomitant]
     Route: 048
     Dates: start: 20170322, end: 20170322
  3. L?THYROXIN [Concomitant]
     Active Substance: LEVOTHYROXINE SODIUM
     Route: 048
     Dates: start: 201211
  4. METHYLPREDNISOLONE. [Suspect]
     Active Substance: METHYLPREDNISOLONE
     Route: 042
     Dates: start: 20170405
  5. METHYLPREDNISOLONE. [Suspect]
     Active Substance: METHYLPREDNISOLONE
     Route: 042
     Dates: start: 20180507
  6. OCRELIZUMAB. [Suspect]
     Active Substance: OCRELIZUMAB
     Indication: RELAPSING-REMITTING MULTIPLE SCLEROSIS
     Dosage: OCRELIZUMAB ADMINISTERED AS TWO 300 MG IV INFUSIONS ON DAYS 1 AND 15 FOLLOWED BY ONE 600 MG IV INFUS
     Route: 042
     Dates: start: 20170322
  7. METHYLPREDNISOLONE. [Suspect]
     Active Substance: METHYLPREDNISOLONE
     Route: 042
     Dates: start: 20170904
  8. PARACETAMOL [Concomitant]
     Active Substance: ACETAMINOPHEN
     Route: 048
     Dates: start: 20170322, end: 20170322
  9. PARACETAMOL [Concomitant]
     Active Substance: ACETAMINOPHEN
     Route: 048
     Dates: start: 20180507, end: 20180507
  10. FENISTIL (GERMANY) [Concomitant]
     Route: 048
     Dates: start: 20180507, end: 20180507
  11. PARACETAMOL [Concomitant]
     Active Substance: ACETAMINOPHEN
     Route: 048
     Dates: start: 20170904, end: 20170904
  12. IBUPROFEN. [Concomitant]
     Active Substance: IBUPROFEN
     Indication: HEADACHE
     Route: 048
     Dates: start: 20170329
  13. METHYLPREDNISOLONE. [Suspect]
     Active Substance: METHYLPREDNISOLONE
     Indication: PREMEDICATION
     Dosage: MOST RECENT DOSE OF METHYLPREDNISOLONE 100 MG PRIOR TO SERIOUS ADVERSE EVENT RECEIVED ON 04/SEP/2017
     Route: 042
     Dates: start: 20170322
  14. DEKRISTOL [Concomitant]
     Active Substance: CHOLECALCIFEROL
     Route: 048
     Dates: start: 20161129
  15. FENISTIL (GERMANY) [Concomitant]
     Route: 048
     Dates: start: 20170904, end: 20170904
  16. PARACETAMOL [Concomitant]
     Active Substance: ACETAMINOPHEN
     Route: 048
     Dates: start: 20170405, end: 20170405

REACTIONS (1)
  - Basal cell carcinoma [Recovered/Resolved]

NARRATIVE: CASE EVENT DATE: 20180413
